FAERS Safety Report 5806239-2 (Version None)
Quarter: 2008Q3

REPORT INFORMATION
  Report Type: 
  Country: None (occurrence: None)
  Receive Date: 20080709
  Receipt Date: 20080709
  Transmission Date: 20090109
  Serious: Yes (Disabling)
  Sender: FDA-Public Use
  Company Number: None

PATIENT
  Sex: Male

DRUGS (2)
  1. BUPIVACAINE [Suspect]
     Indication: ARTHROPATHY
     Dosage: 270 ML 5 ML/ HR 014
     Dates: start: 20041230, end: 20050101
  2. I-FLOW, ON-Q PAINBUSTER [Concomitant]

REACTIONS (2)
  - ARTHROPATHY [None]
  - EXOSTOSIS [None]
